FAERS Safety Report 21737442 (Version 2)
Quarter: 2022Q4

REPORT INFORMATION
  Report Type: Spontaneous
  Country: CN (occurrence: CN)
  Receive Date: 20221216
  Receipt Date: 20221228
  Transmission Date: 20230113
  Serious: Yes (Death, Life-Threatening, Hospitalization, Other)
  Sender: FDA-Public Use
  Company Number: None

PATIENT
  Age: 30 Year
  Sex: Female

DRUGS (2)
  1. MYCOPHENOLATE MOFETIL [Suspect]
     Active Substance: MYCOPHENOLATE MOFETIL
     Indication: Systemic lupus erythematosus
     Dosage: 1 GRAM, BID (EVERY 12 HOUR)
     Route: 048
     Dates: start: 2020
  2. METHYLPREDNISOLONE [Suspect]
     Active Substance: METHYLPREDNISOLONE
     Indication: Systemic lupus erythematosus
     Dosage: 44 MILLIGRAM, QD (EVERY 1 DAY)
     Route: 048
     Dates: start: 2020

REACTIONS (5)
  - Intraventricular haemorrhage [Fatal]
  - Scedosporium infection [Fatal]
  - Brain abscess [Fatal]
  - Central nervous system fungal infection [Fatal]
  - Rash [Unknown]

NARRATIVE: CASE EVENT DATE: 20200101
